FAERS Safety Report 5950443-X (Version None)
Quarter: 2008Q4

REPORT INFORMATION
  Report Type: 
  Country: None (occurrence: None)
  Receive Date: 20081022
  Receipt Date: 20080820
  Transmission Date: 20090506
  Serious: No
  Sender: FDA-Public Use
  Company Number: ALL1-2008-02360

PATIENT
  Age: 40 Year
  Sex: Female
  Weight: 53.5 kg

DRUGS (2)
  1. VYVANSE [Suspect]
     Indication: ATTENTION DEFICIT/HYPERACTIVITY DISORDER
     Dosage: 50 MG, 1X/DAY:QD, ORAL 70 MG, 1X/DAY:QD, ORAL
     Route: 048
     Dates: start: 20080719, end: 20080729
  2. VYVANSE [Suspect]
     Indication: ATTENTION DEFICIT/HYPERACTIVITY DISORDER
     Dosage: 50 MG, 1X/DAY:QD, ORAL 70 MG, 1X/DAY:QD, ORAL
     Route: 048
     Dates: start: 20080814, end: 20080819

REACTIONS (4)
  - DECREASED APPETITE [None]
  - DRUG EFFECT DECREASED [None]
  - FEELING ABNORMAL [None]
  - NAUSEA [None]
